FAERS Safety Report 8387839-5 (Version None)
Quarter: 2012Q2

REPORT INFORMATION
  Report Type: 
  Country: None (occurrence: None)
  Receive Date: 20120525
  Receipt Date: 20120403
  Transmission Date: 20120825
  Serious: No
  Sender: FDA-Public Use
  Company Number: US-BRISTOL-MYERS SQUIBB COMPANY-16430282

PATIENT
  Age: 58 Year

DRUGS (8)
  1. KOMBIGLYZE XR [Suspect]
     Dosage: 1 DF= 5/1000 UNIT NOS
     Dates: start: 20110114
  2. FISH OIL [Concomitant]
  3. NORVASC [Concomitant]
     Dosage: 1 DF = 2.5 UNIT NOS
  4. LISINOPRIL AND HYDROCHLOROTHIAZIDE [Concomitant]
     Dosage: 1 DF = 20/25 UNIT NOS
  5. CRESTOR [Concomitant]
  6. VIAGRA [Concomitant]
  7. MULTI-VITAMIN [Concomitant]
  8. ACETYLSALICYLIC ACID SRT [Concomitant]

REACTIONS (1)
  - DRUG INEFFECTIVE [None]
